FAERS Safety Report 19947413 (Version 1)
Quarter: 2021Q4

REPORT INFORMATION
  Report Type: Spontaneous
  Country: US (occurrence: US)
  Receive Date: 20211013
  Receipt Date: 20211013
  Transmission Date: 20220304
  Serious: No
  Sender: FDA-Public Use
  Company Number: US-TARO-2020TAR01500

PATIENT

DRUGS (2)
  1. CLOTRIMAZOLE [Suspect]
     Active Substance: CLOTRIMAZOLE
     Indication: Fungal skin infection
     Dosage: DAILY, 2-3 TIMES, APPLY TO AFFECTED AREA
     Route: 061
     Dates: start: 20200910
  2. CEPHALEXIN [Concomitant]
     Active Substance: CEPHALEXIN
     Indication: Fungal skin infection
     Dosage: 500 MILLIGRAM, QID
     Route: 048

REACTIONS (1)
  - Drug ineffective [Unknown]

NARRATIVE: CASE EVENT DATE: 20200911
